FAERS Safety Report 19015267 (Version 1)
Quarter: 2021Q1

REPORT INFORMATION
  Report Type: Spontaneous
  Country: DE (occurrence: DE)
  Receive Date: 20210316
  Receipt Date: 20210316
  Transmission Date: 20210420
  Serious: Yes (Hospitalization)
  Sender: FDA-Public Use
  Company Number: DE-JNJFOC-20210317288

PATIENT
  Sex: Male

DRUGS (2)
  1. CORTISONE [Suspect]
     Active Substance: CORTISONE
     Indication: INFLAMMATORY BOWEL DISEASE
     Route: 065
  2. STELARA [Suspect]
     Active Substance: USTEKINUMAB
     Indication: INFLAMMATORY BOWEL DISEASE
     Route: 058

REACTIONS (1)
  - Pancreatitis [Unknown]
